FAERS Safety Report 5632881-8 (Version None)
Quarter: 2008Q1

REPORT INFORMATION
  Report Type: 
  Country: None (occurrence: None)
  Receive Date: 20080212
  Receipt Date: 20080131
  Transmission Date: 20080703
  Serious: Yes (Life-Threatening, Hospitalization, Other)
  Sender: FDA-Public Use
  Company Number: 2007VX001905

PATIENT
  Age: 67 Year
  Sex: Male
  Weight: 80 kg

DRUGS (9)
  1. PERGOLIDE MESYLATE [Suspect]
     Indication: PARKINSON'S DISEASE
     Dosage: 2 MG; QD; PO
     Route: 048
     Dates: start: 20030101, end: 20061201
  2. MADOPAR [Concomitant]
  3. PK-MERZ [Concomitant]
  4. PK-LEVO [Concomitant]
  5. TOREM [Concomitant]
  6. ACETYLSALICYLIC ACID LISINOPRIL [Concomitant]
  7. NOVODIGAL [Concomitant]
  8. QUERTO [Concomitant]
  9. ALDACTONE [Concomitant]

REACTIONS (9)
  - CARDIOMEGALY [None]
  - CONDITION AGGRAVATED [None]
  - CONGESTIVE CARDIOMYOPATHY [None]
  - CORONARY ARTERY STENOSIS [None]
  - DYSPNOEA [None]
  - EJECTION FRACTION DECREASED [None]
  - HYPOKINESIA [None]
  - LEFT VENTRICULAR DYSFUNCTION [None]
  - MITRAL VALVE INCOMPETENCE [None]
